FAERS Safety Report 19001065 (Version 1)
Quarter: 2021Q1

REPORT INFORMATION
  Report Type: Spontaneous
  Country: US (occurrence: US)
  Receive Date: 20210311
  Receipt Date: 20210311
  Transmission Date: 20210420
  Serious: No
  Sender: FDA-Public Use
  Company Number: None

PATIENT
  Age: 33 Year
  Sex: Female
  Weight: 72 kg

DRUGS (1)
  1. RHOFADE [Suspect]
     Active Substance: OXYMETAZOLINE HYDROCHLORIDE
     Indication: ROSACEA
     Route: 061
     Dates: start: 20210307, end: 20210309

REACTIONS (5)
  - Pruritus [None]
  - Sunburn [None]
  - Flushing [None]
  - Erythema [None]
  - Paraesthesia [None]

NARRATIVE: CASE EVENT DATE: 20210309
